FAERS Safety Report 8027593-X (Version None)
Quarter: 2012Q1

REPORT INFORMATION
  Report Type: 
  Country: None (occurrence: None)
  Receive Date: 20120106
  Receipt Date: 20111229
  Transmission Date: 20120608
  Serious: Yes (Hospitalization)
  Sender: FDA-Public Use
  Company Number: FR-SANOFI-AVENTIS-2011SA085415

PATIENT
  Age: 88 Year
  Sex: Male

DRUGS (13)
  1. PREVISCAN [Suspect]
     Route: 048
     Dates: start: 20111022, end: 20111029
  2. AMOXICILLIN [Suspect]
     Route: 048
     Dates: start: 20111021, end: 20111114
  3. LASIX [Concomitant]
     Route: 065
  4. OMEPRAZOLE [Concomitant]
     Route: 065
  5. PREVISCAN [Suspect]
     Route: 048
     Dates: start: 20111109, end: 20111118
  6. AMOXICILLIN [Suspect]
     Indication: PYREXIA
     Route: 048
     Dates: start: 20111021, end: 20111114
  7. RIFADIN [Suspect]
     Indication: PYREXIA
     Route: 048
     Dates: start: 20111108, end: 20111114
  8. RIFADIN [Suspect]
     Indication: ENDOCARDITIS
     Route: 048
     Dates: start: 20111108, end: 20111114
  9. PERINDOPRIL [Concomitant]
     Route: 065
  10. AMOXICILLIN [Suspect]
     Route: 065
     Dates: start: 20111120
  11. AMOXICILLIN [Suspect]
     Route: 065
     Dates: start: 20111120
  12. NEBIVOLOL HCL [Concomitant]
     Route: 065
  13. PRAVASTATIN [Concomitant]
     Route: 065

REACTIONS (5)
  - RENAL FAILURE ACUTE [None]
  - EOSINOPHILIA [None]
  - PRURITUS [None]
  - RASH ERYTHEMATOUS [None]
  - DRUG RASH WITH EOSINOPHILIA AND SYSTEMIC SYMPTOMS [None]
